FAERS Safety Report 7983518-4 (Version None)
Quarter: 2011Q4

REPORT INFORMATION
  Report Type: 
  Country: None (occurrence: None)
  Receive Date: 20111215
  Receipt Date: 20111205
  Transmission Date: 20120403
  Serious: Yes (Hospitalization, Other)
  Sender: FDA-Public Use
  Company Number: US-ELI_LILLY_AND_COMPANY-US201001004818

PATIENT
  Sex: Female

DRUGS (28)
  1. FORTEO [Suspect]
     Dosage: 20 UG, QD
     Route: 058
  2. FLONASE [Concomitant]
  3. CALCIUM [Concomitant]
  4. FORTEO [Suspect]
     Indication: OSTEOPOROSIS
     Dosage: 20 UG, QD
     Route: 058
     Dates: start: 20091101
  5. FORTEO [Suspect]
     Dosage: 20 UG, QD
     Route: 058
  6. RELAFEN [Concomitant]
  7. IRON [Concomitant]
  8. VITAMIN E [Concomitant]
  9. FIBER-LAX [Concomitant]
  10. PREDNISONE TAB [Concomitant]
  11. HYDROCHLORZIDE [Concomitant]
  12. ADVAIR DISKUS 100/50 [Concomitant]
  13. MIRALAX [Concomitant]
  14. FISH OIL [Concomitant]
  15. COLACE [Concomitant]
  16. COMBIVENT [Concomitant]
  17. ASPIRIN [Concomitant]
  18. GABAPENTIN [Concomitant]
  19. FORTEO [Suspect]
     Dosage: 20 UG, QD
     Route: 058
  20. OXAPROZIN [Concomitant]
  21. XANAX [Concomitant]
  22. CENTRUM [Concomitant]
  23. FOLIC ACID [Concomitant]
  24. OXYBUTYNIN [Concomitant]
  25. VITAMIN D [Concomitant]
  26. AMBIEN CR [Concomitant]
  27. SIMVASTATIN [Concomitant]
  28. VITAMIN B-12 [Concomitant]

REACTIONS (5)
  - FALL [None]
  - FEMUR FRACTURE [None]
  - SPINAL COMPRESSION FRACTURE [None]
  - PERIPHERAL ARTERIAL OCCLUSIVE DISEASE [None]
  - BALANCE DISORDER [None]
